FAERS Safety Report 5572512-9 (Version None)
Quarter: 2007Q4

REPORT INFORMATION
  Report Type: 
  Country: None (occurrence: None)
  Receive Date: 20071222
  Receipt Date: 20071216
  Transmission Date: 20080405
  Serious: Yes (Other)
  Sender: FDA-Public Use
  Company Number: US-PFIZER INC-2007105956

PATIENT
  Sex: Female
  Weight: 69.545 kg

DRUGS (3)
  1. ZYVOX [Suspect]
     Indication: CYSTITIS
     Route: 042
  2. DRUG, UNSPECIFIED [Concomitant]
     Route: 048
  3. DRUG, UNSPECIFIED [Concomitant]
     Route: 048

REACTIONS (3)
  - ABNORMAL DREAMS [None]
  - DISORIENTATION [None]
  - HALLUCINATION [None]
